FAERS Safety Report 12640083 (Version 1)
Quarter: 2016Q3

REPORT INFORMATION
  Report Type: Spontaneous
  Country: GB (occurrence: GB)
  Receive Date: 20160810
  Receipt Date: 20160810
  Transmission Date: 20161109
  Serious: Yes (Other)
  Sender: FDA-Public Use
  Company Number: GB-009507513-1608GBR002694

PATIENT
  Age: 71 Year
  Sex: Male
  Weight: 82 kg

DRUGS (12)
  1. GAVISCON ADVANCE [Concomitant]
     Active Substance: POTASSIUM BICARBONATE\SODIUM ALGINATE
     Dosage: UP TO FOUR TIMES DAILY AFTER MEALS AND BEF...
     Dates: start: 20130604
  2. RANITIDINE. [Concomitant]
     Active Substance: RANITIDINE
     Dosage: EACH NIGHT, DOSAGE FORM
     Dates: start: 20160421
  3. BETAHISTINE [Concomitant]
     Active Substance: BETAHISTINE
     Dates: start: 20150828
  4. LATANOPROST. [Concomitant]
     Active Substance: LATANOPROST
     Dosage: ONE DROP TO BOTH EYES AT NIGHT.
     Route: 050
     Dates: start: 20150925
  5. EZETIMIBE. [Suspect]
     Active Substance: EZETIMIBE
     Dates: start: 20160627
  6. BETAHISTINE [Concomitant]
     Active Substance: BETAHISTINE
     Dates: start: 20160614, end: 20160712
  7. CLOPIDOGREL [Concomitant]
     Active Substance: CLOPIDOGREL BISULFATE
     Dosage: 1 DF, QD
     Dates: start: 20150828
  8. MINERAL OIL (+) PETROLATUM, WHITE [Concomitant]
     Active Substance: MINERAL OIL\PETROLATUM
     Dosage: APPLY FOR 4 WEEKS
     Dates: start: 20160524, end: 20160525
  9. ACETAMINOPHEN. [Concomitant]
     Active Substance: ACETAMINOPHEN
     Dosage: TAKE ONE OR TWO FOUR TIMES A DAY.
     Dates: start: 20160503, end: 20160507
  10. BETAHISTINE [Concomitant]
     Active Substance: BETAHISTINE
     Dosage: APPLY FOR 10 DAYS
     Dates: start: 20160503, end: 20160531
  11. BETAHISTINE [Concomitant]
     Active Substance: BETAHISTINE
     Dosage: EACH NIGHT
     Dates: start: 20160412
  12. CLOBETASONE BUTYRATE [Concomitant]
     Active Substance: CLOBETASONE BUTYRATE
     Dosage: APPLY FOR 10 DAYS
     Dates: start: 20160503, end: 20160531

REACTIONS (3)
  - Defaecation urgency [Unknown]
  - Gastrooesophageal reflux disease [Recovered/Resolved]
  - Fatigue [Recovered/Resolved]

NARRATIVE: CASE EVENT DATE: 20160726
